FAERS Safety Report 18248405 (Version 1)
Quarter: 2020Q3

REPORT INFORMATION
  Report Type: Spontaneous
  Country: CA (occurrence: CA)
  Receive Date: 20200909
  Receipt Date: 20200909
  Transmission Date: 20201103
  Serious: Yes (Life-Threatening)
  Sender: FDA-Public Use
  Company Number: CA-009507513-2009CAN003031

PATIENT
  Age: 67 Year
  Sex: Male

DRUGS (1)
  1. ONCOTICE [Suspect]
     Active Substance: BACILLUS CALMETTE-GUERIN SUBSTRAIN TICE LIVE ANTIGEN
     Dosage: 50 MILLIGRAM
     Route: 043

REACTIONS (3)
  - Metastatic lymphoma [Unknown]
  - Procedural haemorrhage [Unknown]
  - Infective aneurysm [Unknown]
